FAERS Safety Report 7779978-4 (Version None)
Quarter: 2011Q4

REPORT INFORMATION
  Report Type: 
  Country: None (occurrence: None)
  Receive Date: 20110922
  Receipt Date: 20110908
  Transmission Date: 20120403
  Serious: Yes (Other)
  Sender: FDA-Public Use
  Company Number: JP-2011-11401

PATIENT
  Age: 77 Year
  Sex: Male

DRUGS (5)
  1. LASIX [Concomitant]
  2. ASPIRIN [Concomitant]
  3. PLAVIX [Concomitant]
  4. SAMSCA [Suspect]
     Dosage: ORAL
     Route: 048
  5. FLUITRAN (TRICHLORMETHIAZIDE) TABLET [Concomitant]

REACTIONS (1)
  - INTERSTITIAL LUNG DISEASE [None]
